FAERS Safety Report 8261307-3 (Version None)
Quarter: 2012Q2

REPORT INFORMATION
  Report Type: 
  Country: None (occurrence: None)
  Receive Date: 20120402
  Receipt Date: 20120320
  Transmission Date: 20120825
  Serious: Yes (Hospitalization, Other)
  Sender: FDA-Public Use
  Company Number: DSU-2012-02006

PATIENT
  Age: 11 Year
  Sex: Male
  Weight: 43.0917 kg

DRUGS (1)
  1. BENICAR [Suspect]
     Indication: AUTOIMMUNE DISORDER
     Dosage: 240 MG (40 MG,Q4 HOURS),PER ORAL
     Route: 048
     Dates: start: 20110601, end: 20120313

REACTIONS (12)
  - ALANINE AMINOTRANSFERASE INCREASED [None]
  - VOMITING [None]
  - HAEMOLYSIS [None]
  - RENAL FAILURE ACUTE [None]
  - HYPOTENSION [None]
  - VICTIM OF CHILD ABUSE [None]
  - ASPARTATE AMINOTRANSFERASE INCREASED [None]
  - NAUSEA [None]
  - HYPERKALAEMIA [None]
  - OFF LABEL USE [None]
  - DEHYDRATION [None]
  - HEPATIC FUNCTION ABNORMAL [None]
